FAERS Safety Report 6381188-2 (Version None)
Quarter: 2009Q3

REPORT INFORMATION
  Report Type: 
  Country: None (occurrence: None)
  Receive Date: 20090929
  Receipt Date: 20090720
  Transmission Date: 20100115
  Serious: No
  Sender: FDA-Public Use
  Company Number: US-TYCO HEALTHCARE/MALLINCKRODT-T200901400

PATIENT
  Sex: Female

DRUGS (2)
  1. TECHNETIUM TC 99M SESTAMIBI [Suspect]
     Dosage: UNK
     Route: 042
     Dates: start: 20090720, end: 20090720
  2. ULTRA-TECHNEKOW [Concomitant]
     Dosage: UNK
     Route: 042
     Dates: start: 20090720, end: 20090720

REACTIONS (1)
  - DRUG INEFFECTIVE [None]
